FAERS Safety Report 20533123 (Version 1)
Quarter: 2022Q1

REPORT INFORMATION
  Report Type: Spontaneous
  Country: NL (occurrence: NL)
  Receive Date: 20220301
  Receipt Date: 20220301
  Transmission Date: 20220423
  Serious: Yes (Hospitalization)
  Sender: FDA-Public Use
  Company Number: NL-TAKEDA-2022TUS013173

PATIENT
  Age: 59 Year
  Sex: Male
  Weight: 94 kg

DRUGS (26)
  1. NINLARO [Suspect]
     Active Substance: IXAZOMIB CITRATE
     Indication: Plasma cell myeloma
     Dosage: 4 MILLIGRAM
     Route: 048
     Dates: start: 20131007
  2. DEXAMETHASONE [Suspect]
     Active Substance: DEXAMETHASONE
     Indication: Plasma cell myeloma
     Dosage: 20 MILLIGRAM
     Route: 048
     Dates: start: 20131007
  3. REVLIMID [Suspect]
     Active Substance: LENALIDOMIDE
     Indication: Plasma cell myeloma
     Dosage: 25 MILLIGRAM
     Route: 048
     Dates: start: 20131007
  4. DICLOFENAC [Concomitant]
     Active Substance: DICLOFENAC
     Indication: Fracture
     Dosage: 50 MILLIGRAM, QD
     Route: 042
     Dates: start: 20140618
  5. OXYCODONE [Concomitant]
     Active Substance: OXYCODONE
     Indication: Back pain
     Dosage: 40 MILLIGRAM
     Route: 048
     Dates: start: 20140801, end: 20140901
  6. OXYCODONE [Concomitant]
     Active Substance: OXYCODONE
     Indication: Fracture
     Dosage: 10 MILLIGRAM
     Route: 048
     Dates: start: 20140520
  7. OXYCODONE [Concomitant]
     Active Substance: OXYCODONE
     Dosage: 15 MILLIGRAM
     Route: 048
     Dates: start: 20140929
  8. FUROSEMIDE [Concomitant]
     Active Substance: FUROSEMIDE
     Indication: Product used for unknown indication
     Dosage: UNK
     Route: 065
  9. FENTANYL [Concomitant]
     Active Substance: FENTANYL
     Indication: Product used for unknown indication
     Dosage: 50 MICROGRAM
     Route: 062
     Dates: start: 20140901, end: 20140925
  10. FENTANYL [Concomitant]
     Active Substance: FENTANYL
     Dosage: 23 MICROGRAM
     Route: 062
     Dates: start: 20140729, end: 20140901
  11. FENTANYL [Concomitant]
     Active Substance: FENTANYL
     Dosage: 75 MICROGRAM
     Route: 062
     Dates: start: 20140925
  12. CLODRONATE DISOD. [Concomitant]
     Indication: Bone lesion
     Dosage: UNK
     Route: 065
  13. ACETAMINOPHEN [Concomitant]
     Active Substance: ACETAMINOPHEN
     Indication: Back pain
     Dosage: 1 GRAM, QD
     Route: 042
     Dates: start: 20140929, end: 20140929
  14. ACETAMINOPHEN [Concomitant]
     Active Substance: ACETAMINOPHEN
     Indication: Fracture
     Dosage: 1 GRAM, QD
     Route: 042
     Dates: start: 20140618
  15. KIOVIG [Concomitant]
     Active Substance: HUMAN IMMUNOGLOBULIN G
     Indication: Prophylaxis
     Dosage: 10000 MILLIGRAM, MONTHLY
     Route: 042
     Dates: start: 2009
  16. KIOVIG [Concomitant]
     Active Substance: HUMAN IMMUNOGLOBULIN G
     Dosage: 100 MILLIGRAM, MONTHLY
     Route: 042
     Dates: start: 20140929
  17. PEGFILGRASTIM [Concomitant]
     Active Substance: PEGFILGRASTIM
     Indication: Prophylaxis
     Dosage: 6 MILLIGRAM, MONTHLY
     Route: 058
     Dates: start: 20140818, end: 20140930
  18. PAMIDRONATE [Concomitant]
     Active Substance: PAMIDRONATE DISODIUM
     Indication: Osteoporosis prophylaxis
     Dosage: 30 MILLIGRAM
     Route: 042
     Dates: start: 20140303
  19. CALCIUM CARBONATE [Concomitant]
     Active Substance: CALCIUM CARBONATE
     Indication: Osteoporosis prophylaxis
     Dosage: 1.25 GRAM
     Route: 048
     Dates: start: 20130920
  20. VALACYCLOVIR HYDROCHLORIDE [Concomitant]
     Active Substance: VALACYCLOVIR HYDROCHLORIDE
     Indication: Prophylaxis
     Dosage: 1000 MILLIGRAM, QD
     Route: 048
     Dates: start: 20110628
  21. PANTOPRAZOLE [Concomitant]
     Active Substance: PANTOPRAZOLE
     Indication: Prophylaxis against gastrointestinal ulcer
     Dosage: 40 MILLIGRAM
     Route: 048
     Dates: start: 20131001
  22. VENLAFAXINE [Concomitant]
     Active Substance: VENLAFAXINE HYDROCHLORIDE
     Indication: Fracture
     Dosage: 300 MILLIGRAM, QD
     Route: 048
     Dates: start: 20141003
  23. VENLAFAXINE [Concomitant]
     Active Substance: VENLAFAXINE HYDROCHLORIDE
     Dosage: 412.5 MILLIGRAM, QD
     Route: 048
     Dates: start: 20140512
  24. NADROPARIN [Concomitant]
     Active Substance: NADROPARIN
     Indication: Thrombosis prophylaxis
     Dosage: UNK
     Route: 048
     Dates: start: 20131004
  25. SULFAMETHOXAZOLE [Concomitant]
     Active Substance: SULFAMETHOXAZOLE
     Indication: Antibiotic prophylaxis
     Dosage: UNK UNK, QD
     Route: 048
     Dates: start: 20130920
  26. FOLIC ACID [Concomitant]
     Active Substance: FOLIC ACID
     Indication: Anaemia
     Dosage: 5 MILLIGRAM
     Route: 048

REACTIONS (1)
  - Spinal pain [Recovered/Resolved]

NARRATIVE: CASE EVENT DATE: 20140925
